FAERS Safety Report 4646692-3 (Version None)
Quarter: 2005Q2

REPORT INFORMATION
  Report Type: 
  Country: None (occurrence: None)
  Receive Date: 20050425
  Receipt Date: 20050412
  Transmission Date: 20051028
  Serious: Yes (Death, Hospitalization)
  Sender: FDA-Public Use
  Company Number: 04P-259-0260108-00

PATIENT
  Age: 53 Year
  Sex: Female

DRUGS (7)
  1. DEPAKENE [Suspect]
     Indication: EPILEPSY
     Dosage: 1500 MG, 1 IN 1 D, PER ORAL
     Route: 048
     Dates: start: 20031204, end: 20031221
  2. DEXAMETHASONE [Concomitant]
  3. FUROSEMIDE [Concomitant]
  4. HYDERGIN [Concomitant]
  5. PIRACETAM [Concomitant]
  6. DOPAMINE [Concomitant]
  7. DOBUTAMINE HCL [Concomitant]

REACTIONS (19)
  - ACTIVATED PARTIAL THROMBOPLASTIN TIME PROLONGED [None]
  - BLOOD ALBUMIN DECREASED [None]
  - BLOOD PRESSURE DECREASED [None]
  - BRAIN NEOPLASM [None]
  - BRAIN SCAN ABNORMAL [None]
  - CEREBRAL VENTRICLE DILATATION [None]
  - GENERAL PHYSICAL HEALTH DETERIORATION [None]
  - HEPATIC ENCEPHALOPATHY [None]
  - HEPATITIS FULMINANT [None]
  - HEPATORENAL FAILURE [None]
  - HYPERAMMONAEMIA [None]
  - HYPONATRAEMIA [None]
  - INTERNATIONAL NORMALISED RATIO INCREASED [None]
  - MENINGIOMA [None]
  - METASTASES TO LIVER [None]
  - NEOPLASM PROGRESSION [None]
  - POST PROCEDURAL COMPLICATION [None]
  - SUBDURAL HAEMORRHAGE [None]
  - UNEVALUABLE EVENT [None]
